FAERS Safety Report 6066952-1 (Version None)
Quarter: 2009Q1

REPORT INFORMATION
  Report Type: 
  Country: None (occurrence: None)
  Receive Date: 20090205
  Receipt Date: 20081104
  Transmission Date: 20090719
  Serious: No
  Sender: FDA-Public Use
  Company Number: US-ABBOTT-08P-163-0479775-00

PATIENT
  Sex: Female

DRUGS (1)
  1. VICODIN [Suspect]
     Indication: PROCEDURAL PAIN
     Dosage: TOOK ONLY ONE PILL
     Route: 048
     Dates: start: 19930101, end: 19930101

REACTIONS (3)
  - DYSPNOEA [None]
  - PHARYNGEAL OEDEMA [None]
  - SWOLLEN TONGUE [None]
